FAERS Safety Report 5143552-9 (Version None)
Quarter: 2006Q4

REPORT INFORMATION
  Report Type: 
  Country: None (occurrence: None)
  Receive Date: 20061030
  Receipt Date: 20061018
  Transmission Date: 20070319
  Serious: Yes (Other)
  Sender: FDA-Public Use
  Company Number: 2006128805

PATIENT
  Sex: Female

DRUGS (2)
  1. CAMPTOSAR [Suspect]
     Indication: COLORECTAL CANCER METASTATIC
  2. AVASTIN [Suspect]
     Indication: COLORECTAL CANCER METASTATIC

REACTIONS (3)
  - HEPATIC PAIN [None]
  - METASTASES TO LIVER [None]
  - NEUTROPENIA [None]
